FAERS Safety Report 5765188-9 (Version None)
Quarter: 2008Q2

REPORT INFORMATION
  Report Type: 
  Country: None (occurrence: None)
  Receive Date: 20080604
  Receipt Date: 20080522
  Transmission Date: 20081010
  Serious: Yes (Hospitalization)
  Sender: FDA-Public Use
  Company Number: 2008-177866-NL

PATIENT
  Age: 34 Year
  Sex: Female

DRUGS (13)
  1. DESOGEN [Suspect]
     Indication: OVARIAN DISORDER
     Dosage: 1 DF QD ORAL
     Route: 048
     Dates: start: 20080209, end: 20080229
  2. ORG 32489 [Suspect]
     Indication: OVARIAN DISORDER
     Dosage: 200 IU QD SUBCUTANEOUS
     Route: 058
     Dates: start: 20080305, end: 20080314
  3. PRGENYL [Concomitant]
  4. GANIRELIX ACETATE INJECTION [Concomitant]
  5. PROMETRIUM [Concomitant]
  6. ZOLOFT [Concomitant]
  7. ULTRAM [Concomitant]
  8. RELPAX [Concomitant]
  9. DUET DHA [Concomitant]
  10. ZITHROMYCIN [Concomitant]
  11. ASPIRIN [Concomitant]
  12. ZOFRAN [Concomitant]
  13. PREMESIS [Concomitant]

REACTIONS (2)
  - OVARIAN CYST RUPTURED [None]
  - OVARIAN HYPERSTIMULATION SYNDROME [None]
